FAERS Safety Report 12697684 (Version 1)
Quarter: 2016Q3

REPORT INFORMATION
  Report Type: Report from Study
  Country: KR (occurrence: KR)
  Receive Date: 20160830
  Receipt Date: 20160830
  Transmission Date: 20161109
  Serious: Yes (Hospitalization)
  Sender: FDA-Public Use
  Company Number: KR-HIKMA PHARMACEUTICALS CO. LTD-2016KR008179

PATIENT

DRUGS (22)
  1. REMSIMA [Suspect]
     Active Substance: INFLIXIMAB
     Dosage: 300 MG, EVERY 8 WEEKS
     Route: 042
  2. REMSIMA [Suspect]
     Active Substance: INFLIXIMAB
     Dosage: 300 MG, EVERY 8 WEEKS
     Route: 042
  3. GABATIN                            /01003001/ [Concomitant]
     Indication: ANKYLOSING SPONDYLITIS
     Dosage: 300 MG, BID
     Route: 048
     Dates: start: 20150310, end: 20160810
  4. LYRICA [Concomitant]
     Active Substance: PREGABALIN
     Indication: ANKYLOSING SPONDYLITIS
     Dosage: 75 MG, BID
     Route: 048
     Dates: start: 20151203, end: 20160810
  5. REMSIMA [Suspect]
     Active Substance: INFLIXIMAB
     Indication: ANKYLOSING SPONDYLITIS
     Dosage: 300 MG, EVERY 8 WEEKS
     Route: 042
     Dates: start: 20141215, end: 20141215
  6. REMSIMA [Suspect]
     Active Substance: INFLIXIMAB
     Dosage: 300 MG, EVERY 8 WEEKS
     Route: 042
  7. YUHANZID [Concomitant]
     Active Substance: ISONIAZID
     Indication: LATENT TUBERCULOSIS
     Dosage: 300 MG, DAILY
     Route: 048
     Dates: start: 20160128
  8. TARGIN [Concomitant]
     Active Substance: NALOXONE HYDROCHLORIDE\OXYCODONE HYDROCHLORIDE
     Indication: ANKYLOSING SPONDYLITIS
     Dosage: 10/5 MG, BID
     Route: 048
     Dates: start: 20151203
  9. REMSIMA [Suspect]
     Active Substance: INFLIXIMAB
     Dosage: 300 MG, EVERY 8 WEEKS
     Route: 042
  10. REMSIMA [Suspect]
     Active Substance: INFLIXIMAB
     Dosage: 300 MG, EVERY 8 WEEKS
     Route: 042
  11. REMSIMA [Suspect]
     Active Substance: INFLIXIMAB
     Dosage: 300 MG, EVERY 8 WEEKS
     Route: 042
  12. REMSIMA [Suspect]
     Active Substance: INFLIXIMAB
     Dosage: 300 MG, EVERY 8 WEEKS
     Route: 042
     Dates: start: 20150225, end: 20150225
  13. GASMOTIN [Concomitant]
     Active Substance: MOSAPRIDE CITRATE
     Indication: GASTRIC ULCER
     Dosage: 5 MG, BID
     Route: 048
     Dates: start: 20160128
  14. SENSIVAL [Concomitant]
     Indication: ANKYLOSING SPONDYLITIS
     Dosage: 5 MG, BID
     Route: 048
     Dates: start: 20160421
  15. REMSIMA [Suspect]
     Active Substance: INFLIXIMAB
     Dosage: 300 MG, EVERY 8 WEEKS
     Route: 042
  16. PYRIDOXINE HCL [Concomitant]
     Active Substance: PYRIDOXINE HYDROCHLORIDE
     Indication: LATENT TUBERCULOSIS
     Dosage: 50 MG, DAILY
     Route: 048
     Dates: start: 20160225
  17. MAGNESIUM OXIDE. [Concomitant]
     Active Substance: MAGNESIUM OXIDE
     Indication: ANAL HAEMORRHAGE
     Dosage: 250 MG, BID
     Route: 048
     Dates: start: 20141231
  18. PARAMACET [Concomitant]
     Active Substance: ACETAMINOPHEN\TRAMADOL
     Indication: ANKYLOSING SPONDYLITIS
     Dosage: 2 DF, BID
     Route: 048
     Dates: start: 20150310
  19. CYMBALTA [Concomitant]
     Active Substance: DULOXETINE HYDROCHLORIDE
     Indication: ANKYLOSING SPONDYLITIS
     Dosage: 30 MG, BID
     Route: 048
     Dates: start: 20151203
  20. REMSIMA [Suspect]
     Active Substance: INFLIXIMAB
     Dosage: 300 MG, EVERY 8 WEEKS
     Route: 042
  21. VIMOVO [Concomitant]
     Active Substance: ESOMEPRAZOLE MAGNESIUM\NAPROXEN
     Indication: ANKYLOSING SPONDYLITIS
     Dosage: 500/20 MG, BID
     Route: 048
     Dates: start: 20160428
  22. NEXIUM [Concomitant]
     Active Substance: ESOMEPRAZOLE MAGNESIUM
     Indication: GASTRIC ULCER
     Dosage: 40 MG, BID
     Route: 048
     Dates: start: 20160128

REACTIONS (1)
  - Haemorrhoids [Recovered/Resolved]

NARRATIVE: CASE EVENT DATE: 20160428
